FAERS Safety Report 23679183 (Version 1)
Quarter: 2024Q1

REPORT INFORMATION
  Report Type: Spontaneous
  Country: US (occurrence: None)
  Receive Date: 20240326
  Receipt Date: 20240326
  Transmission Date: 20240409
  Serious: Yes (Hospitalization)
  Sender: FDA-Public Use
  Company Number: None

PATIENT
  Age: 40 Year
  Sex: Female
  Weight: 84.6 kg

DRUGS (3)
  1. WIXELA INHUB [Suspect]
     Active Substance: FLUTICASONE PROPIONATE\SALMETEROL XINAFOATE
     Indication: Bronchitis
     Dosage: OTHER QUANTITY : 1 INHALATION(S);?FREQUENCY : EVERY 12 HOURS;?
     Route: 055
     Dates: start: 20240325, end: 20240325
  2. albuterol [Concomitant]
  3. BENZONATATE [Concomitant]
     Active Substance: BENZONATATE

REACTIONS (2)
  - Heart rate increased [None]
  - Respiratory rate increased [None]

NARRATIVE: CASE EVENT DATE: 20240325
